FAERS Safety Report 7280875-1 (Version None)
Quarter: 2011Q1

REPORT INFORMATION
  Report Type: 
  Country: None (occurrence: None)
  Receive Date: 20110208
  Receipt Date: 20110202
  Transmission Date: 20110831
  Serious: Yes (Death)
  Sender: FDA-Public Use
  Company Number: DE-BAXTER-2011BH001892

PATIENT
  Age: 78 Year
  Sex: Male

DRUGS (7)
  1. EXTRANEAL [Suspect]
     Indication: PERITONEAL DIALYSIS
     Route: 033
     Dates: start: 20110112, end: 20110122
  2. ASPIRIN [Concomitant]
     Indication: CORONARY ARTERY DISEASE
     Route: 048
     Dates: end: 20110122
  3. PHYSIOSOL IN PLASTIC CONTAINER [Suspect]
     Indication: PERITONEAL DIALYSIS
     Route: 033
     Dates: start: 20110112, end: 20110122
  4. PHYSIOSOL IN PLASTIC CONTAINER [Suspect]
     Indication: NEPHROSCLEROSIS
     Route: 033
     Dates: start: 20110112, end: 20110122
  5. ISCOVER [Concomitant]
     Indication: CORONARY ARTERY DISEASE
     Route: 048
     Dates: start: 20050101, end: 20110122
  6. AMLODIPINE [Concomitant]
     Indication: HYPERTENSION
     Route: 048
     Dates: start: 20050101, end: 20101210
  7. EXTRANEAL [Suspect]
     Indication: NEPHROSCLEROSIS
     Route: 033
     Dates: start: 20110112, end: 20110122

REACTIONS (1)
  - CARDIAC FAILURE [None]
